FAERS Safety Report 15579170 (Version 1)
Quarter: 2018Q4

REPORT INFORMATION
  Report Type: Spontaneous
  Country: US (occurrence: US)
  Receive Date: 20181102
  Receipt Date: 20181102
  Transmission Date: 20190205
  Serious: No
  Sender: FDA-Public Use
  Company Number: US-SA-2018SA298961

PATIENT
  Age: 25 Year
  Sex: Female

DRUGS (1)
  1. ROLAIDS ADVANCED ANTACID ANTI-GAS MIXED BERRY [Suspect]
     Active Substance: CALCIUM CARBONATE\DIMETHICONE\MAGNESIUM HYDROXIDE
     Dosage: UNK, UNK
     Route: 065

REACTIONS (2)
  - Dry mouth [Unknown]
  - Dysgeusia [Unknown]
